FAERS Safety Report 5311610-1 (Version None)
Quarter: 2007Q2

REPORT INFORMATION
  Report Type: 
  Country: None (occurrence: None)
  Receive Date: 20070430
  Receipt Date: 20070424
  Transmission Date: 20071010
  Serious: Yes (Other)
  Sender: FDA-Public Use
  Company Number: PHBS2006BR16420

PATIENT
  Age: 71 Year
  Sex: Female

DRUGS (2)
  1. HORMONES [Concomitant]
     Indication: BREAST CANCER METASTATIC
     Dosage: UNK, UNK
     Route: 065
  2. ZOMETA [Suspect]
     Indication: BREAST CANCER METASTATIC
     Dosage: 4 MG, QMO

REACTIONS (4)
  - BONE DISORDER [None]
  - HYPERBARIC OXYGEN THERAPY [None]
  - OSTEONECROSIS [None]
  - PAIN IN JAW [None]
